FAERS Safety Report 12106458 (Version 1)
Quarter: 2016Q1

REPORT INFORMATION
  Report Type: Other
  Country: US (occurrence: US)
  Receive Date: 20160223
  Receipt Date: 20160223
  Transmission Date: 20160526
  Serious: Yes (Other)
  Sender: FDA-Public Use
  Company Number: US-GUTHY-RENKER LLC-1048316

PATIENT
  Age: 63 Year
  Sex: Female

DRUGS (8)
  1. PROACTIV SOLUTION OIL FREE MOISTURE SPF 15 MOISTURIZER [Suspect]
     Active Substance: OCTINOXATE\ZINC OXIDE
     Route: 061
     Dates: start: 20160110
  2. DIABETIC MEDICATION [Concomitant]
     Active Substance: UNSPECIFIED INGREDIENT
  3. PROACTIV SOLUTION RENEWING CLEANSER [Suspect]
     Active Substance: BENZOYL PEROXIDE
     Indication: ACNE
     Route: 061
     Dates: start: 20160110
  4. PROACTIV REPAIRING TREATMENT [Suspect]
     Active Substance: BENZOYL PEROXIDE
     Route: 061
     Dates: start: 20160110
  5. VITAMINS [Concomitant]
     Active Substance: VITAMINS
  6. PROACTIV SKIN LIGHTENING [Suspect]
     Active Substance: HYDROQUINONE
     Route: 061
     Dates: start: 20160110
  7. FISH OIL [Concomitant]
     Active Substance: FISH OIL
  8. BLOOD THINNERS [Concomitant]
     Active Substance: UNSPECIFIED INGREDIENT

REACTIONS (6)
  - Nasal dryness [None]
  - Epistaxis [None]
  - Skin exfoliation [Not Recovered/Not Resolved]
  - Skin haemorrhage [None]
  - Application site haemorrhage [None]
  - Application site exfoliation [None]

NARRATIVE: CASE EVENT DATE: 20160112
